FAERS Safety Report 6016143-5 (Version None)
Quarter: 2008Q4

REPORT INFORMATION
  Report Type: 
  Country: None (occurrence: None)
  Receive Date: 20081222
  Receipt Date: 20081216
  Transmission Date: 20090506
  Serious: Yes (Death)
  Sender: FDA-Public Use
  Company Number: US-AVENTIS-200818523US

PATIENT
  Age: 37 Year
  Sex: Female

DRUGS (3)
  1. LOVENOX [Suspect]
     Route: 051
  2. CANCER THERAPY NOS [Concomitant]
     Dosage: DOSE: UNK
  3. PAIN MANAGEMENT MEDICATION NOS [Concomitant]

REACTIONS (1)
  - DEATH [None]
